FAERS Safety Report 20807981 (Version 1)
Quarter: 2022Q2

REPORT INFORMATION
  Report Type: Spontaneous
  Country: US (occurrence: US)
  Receive Date: 20220510
  Receipt Date: 20220510
  Transmission Date: 20220721
  Serious: No
  Sender: FDA-Public Use
  Company Number: US-BAYER-2022A066828

PATIENT
  Age: 21 Year
  Sex: Female

DRUGS (3)
  1. KYLEENA [Suspect]
     Active Substance: LEVONORGESTREL
     Indication: Intra-uterine contraceptive device insertion
     Dosage: 17.5?G/DAY
     Route: 015
     Dates: start: 202011
  2. CAYSTON [Concomitant]
     Active Substance: AZTREONAM
     Indication: Cystic fibrosis
  3. CAYSTON [Concomitant]
     Active Substance: AZTREONAM
     Indication: Genitourinary symptom

REACTIONS (1)
  - Rash [Recovering/Resolving]

NARRATIVE: CASE EVENT DATE: 20220301
